FAERS Safety Report 9837470 (Version 2)
Quarter: 2014Q2

REPORT INFORMATION
  Report Type: Spontaneous
  Country: US (occurrence: None)
  Receive Date: 20131127
  Receipt Date: 20140530
  Transmission Date: 20141212
  Serious: No
  Sender: FDA-Public Use
  Company Number: 224055

PATIENT
  Sex: Female

DRUGS (1)
  1. PICATO (INGENOL MEBUTATE) (0.015 %, GEL) [Suspect]
     Indication: ACTINIC KERATOSIS
     Route: 061
     Dates: start: 201309

REACTIONS (5)
  - Application site exfoliation [None]
  - Application site erythema [None]
  - Application site pain [None]
  - Drug administration error [None]
  - Inappropriate schedule of drug administration [None]
